FAERS Safety Report 8066432-8 (Version None)
Quarter: 2012Q1

REPORT INFORMATION
  Report Type: 
  Country: None (occurrence: None)
  Receive Date: 20120117
  Receipt Date: 20120104
  Transmission Date: 20120608
  Serious: No
  Sender: FDA-Public Use
  Company Number: DSJ-2011-20325

PATIENT
  Age: 8 Decade
  Sex: Female

DRUGS (6)
  1. ATORVASTATIN (ATORVASTATIN) (ATORVASTATIN) [Concomitant]
  2. BENICAR [Suspect]
     Indication: HYPERTENSION
     Dosage: 20 MG (20 MG,1 IN 1 D),PER ORAL ; 40 MG (40 MG,1 IN 1 D),PER ORAL
     Route: 048
     Dates: start: 20080101, end: 20110913
  3. BENICAR [Suspect]
     Indication: HYPERTENSION
     Dosage: 20 MG (20 MG,1 IN 1 D),PER ORAL ; 40 MG (40 MG,1 IN 1 D),PER ORAL
     Route: 048
     Dates: start: 20110914
  4. CARVEDILOL [Concomitant]
  5. VILDAGLIPTIN (VILDAGLIPTIN) (VILDAGLIPTIN) [Concomitant]
  6. ACETYLSALICYLIC ACID SRT [Concomitant]

REACTIONS (2)
  - DRUG INEFFECTIVE [None]
  - BLOOD PRESSURE SYSTOLIC INCREASED [None]
